FAERS Safety Report 6661369-0 (Version None)
Quarter: 2010Q1

REPORT INFORMATION
  Report Type: 
  Country: None (occurrence: None)
  Receive Date: 20100331
  Receipt Date: 20100324
  Transmission Date: 20100710
  Serious: Yes (Other)
  Sender: FDA-Public Use
  Company Number: PHEH2005US01236

PATIENT
  Sex: Male
  Weight: 93.424 kg

DRUGS (21)
  1. ZOMETA [Suspect]
     Indication: METASTASES TO BONE
     Dosage: 4 MG, Q3WK
     Dates: start: 20021029, end: 20030903
  2. ANTINEOPLASTIC AGENTS [Concomitant]
     Dosage: UNK
     Dates: end: 20060420
  3. ZOCOR [Concomitant]
     Dosage: 40 MG, QD
     Route: 048
  4. WELLBUTRIN SR [Concomitant]
     Dosage: 150 MG, BID
     Route: 048
  5. DECADRON [Concomitant]
     Dosage: 4 MG, UNK
  6. REMERON [Concomitant]
     Dosage: 30 MG, QHS
     Route: 048
  7. LEXAPRO [Concomitant]
     Dosage: 10 MG, QD
     Route: 048
  8. CASODEX [Concomitant]
     Indication: PROSTATE CANCER METASTATIC
     Dosage: 50 MG, QD
     Route: 048
  9. CARBOPLATIN [Concomitant]
     Indication: PROSTATE CANCER METASTATIC
  10. LUPRON [Concomitant]
     Indication: PROSTATE CANCER METASTATIC
  11. TAXOL [Concomitant]
     Indication: PROSTATE CANCER METASTATIC
  12. ATIVAN [Concomitant]
  13. COUMADIN [Concomitant]
     Dosage: UNK
     Dates: end: 20041005
  14. ELIXIR PAREGORIQUE ^GIFRER^ [Concomitant]
     Dosage: UNK
  15. BENADRYL ^ACHE^ [Concomitant]
     Dosage: UNK
  16. KAOPECTATE [Concomitant]
     Dosage: UNK
  17. IBUPROFEN [Concomitant]
     Dosage: 800 MG
  18. LORTAB [Concomitant]
     Dosage: 5 MG
  19. ACYCLOVIR [Concomitant]
  20. KEFLEX [Concomitant]
  21. LEVAQUIN [Concomitant]

REACTIONS (19)
  - BONE DEBRIDEMENT [None]
  - BONE DISORDER [None]
  - BONE OPERATION [None]
  - DENTAL CARE [None]
  - DENTAL OPERATION [None]
  - EXOSTOSIS [None]
  - FISTULA [None]
  - FISTULA DISCHARGE [None]
  - GINGIVAL OPERATION [None]
  - HERPES ZOSTER [None]
  - IMPAIRED HEALING [None]
  - JAW DISORDER [None]
  - JAW OPERATION [None]
  - NUCLEAR MAGNETIC RESONANCE IMAGING ABNORMAL [None]
  - OSTECTOMY [None]
  - OSTEONECROSIS [None]
  - PERIODONTAL OPERATION [None]
  - SWELLING [None]
  - TOOTH EXTRACTION [None]
